FAERS Safety Report 4893925-4 (Version None)
Quarter: 2006Q1

REPORT INFORMATION
  Report Type: 
  Country: None (occurrence: None)
  Receive Date: 20060127
  Receipt Date: 20050210
  Transmission Date: 20060701
  Serious: No
  Sender: FDA-Public Use
  Company Number: 2005-00463

PATIENT
  Sex: Female

DRUGS (2)
  1. BUPROPION [Suspect]
     Dosage: 150MG PER DAY
     Route: 048
  2. WELLBUTRIN [Concomitant]
     Dosage: 150MG TWICE PER DAY
     Route: 048

REACTIONS (2)
  - DRUG INEFFECTIVE [None]
  - PHARMACEUTICAL PRODUCT COMPLAINT [None]
